FAERS Safety Report 11293487 (Version 2)
Quarter: 2016Q4

REPORT INFORMATION
  Report Type: Spontaneous
  Country: US (occurrence: US)
  Receive Date: 20150722
  Receipt Date: 20161222
  Transmission Date: 20170206
  Serious: Yes (Other)
  Sender: FDA-Public Use
  Company Number: US-ELI_LILLY_AND_COMPANY-US201507004744

PATIENT
  Sex: Male

DRUGS (2)
  1. CYMBALTA [Suspect]
     Active Substance: DULOXETINE HYDROCHLORIDE
     Indication: DEPRESSION
  2. CYMBALTA [Suspect]
     Active Substance: DULOXETINE HYDROCHLORIDE
     Indication: PAIN

REACTIONS (16)
  - Nausea [Unknown]
  - Tinnitus [Unknown]
  - Drug withdrawal syndrome [Unknown]
  - Paraesthesia [Unknown]
  - Dizziness [Unknown]
  - Irritability [Unknown]
  - Seizure [Unknown]
  - Vertigo [Unknown]
  - Confusional state [Unknown]
  - Headache [Unknown]
  - Dysphoria [Unknown]
  - Suicidal ideation [Unknown]
  - Mood swings [Unknown]
  - Anxiety [Unknown]
  - Affect lability [Unknown]
  - Fatigue [Unknown]
